FAERS Safety Report 9531162 (Version 1)
Quarter: 2013Q3

REPORT INFORMATION
  Report Type: Report from Study
  Country: US (occurrence: US)
  Receive Date: 20130918
  Receipt Date: 20130918
  Transmission Date: 20140515
  Serious: Yes (Other)
  Sender: FDA-Public Use
  Company Number: PHEH2013US019372

PATIENT
  Age: 60 Year
  Sex: Female

DRUGS (7)
  1. GILENYA [Suspect]
     Dosage: 0.5 MG, QD
     Route: 048
     Dates: start: 20110214
  2. PROTONIX [Concomitant]
     Dosage: 40 MG, QD
     Route: 048
  3. NAMENDA [Concomitant]
     Dosage: 10 MG, BID
     Route: 048
  4. LAMOTRIGINE [Concomitant]
     Dosage: 100 MG, BID
     Route: 048
  5. BACLOFEN [Concomitant]
     Dosage: 10 MG, BID
     Route: 048
  6. SIMVASTATIN [Concomitant]
     Dosage: 40 MG, QD
     Route: 048
  7. LEVOTHYROXINE [Concomitant]
     Dosage: 75 UG, QD
     Route: 048

REACTIONS (4)
  - Gait disturbance [Recovered/Resolved]
  - Amnesia [Recovered/Resolved]
  - Visual impairment [Recovering/Resolving]
  - Asthenia [Recovered/Resolved]
